FAERS Safety Report 9278743 (Version 1)
Quarter: 2013Q2

REPORT INFORMATION
  Report Type: Spontaneous
  Country: US (occurrence: US)
  Receive Date: 20130508
  Receipt Date: 20130508
  Transmission Date: 20140414
  Serious: No
  Sender: FDA-Public Use
  Company Number: US-ASTRAZENECA-2013SE29688

PATIENT
  Age: 84 Year
  Sex: Female
  Weight: 61.2 kg

DRUGS (5)
  1. NEXIUM [Suspect]
     Indication: GASTROOESOPHAGEAL REFLUX DISEASE
     Route: 048
     Dates: start: 200804, end: 201304
  2. NEXIUM [Suspect]
     Indication: GASTROOESOPHAGEAL REFLUX DISEASE
     Route: 048
     Dates: start: 201304
  3. PAXIL CR [Concomitant]
     Indication: NEUROTRANSMITTER LEVEL ALTERED
     Dates: start: 1991
  4. SYNTHROID [Concomitant]
     Dates: start: 2012
  5. PROVASTATIN [Concomitant]
     Indication: BLOOD CHOLESTEROL ABNORMAL
     Dates: start: 1983

REACTIONS (4)
  - Body height decreased [Not Recovered/Not Resolved]
  - Regurgitation [Not Recovered/Not Resolved]
  - Pain in extremity [Recovering/Resolving]
  - Intentional drug misuse [Not Recovered/Not Resolved]
